FAERS Safety Report 6168097-9 (Version None)
Quarter: 2009Q2

REPORT INFORMATION
  Report Type: 
  Country: None (occurrence: None)
  Receive Date: 20090423
  Receipt Date: 20090413
  Transmission Date: 20091009
  Serious: Yes (Other)
  Sender: FDA-Public Use
  Company Number: 430026K09USA

PATIENT
  Age: 52 Year
  Sex: Female

DRUGS (5)
  1. NOVANTRONE [Suspect]
     Indication: MULTIPLE SCLEROSIS
     Dates: start: 20081210
  2. COPAXONE [Concomitant]
  3. VICODIN [Concomitant]
  4. ABILIFY [Concomitant]
  5. CYMBALTA [Concomitant]

REACTIONS (5)
  - ALOPECIA [None]
  - DISSOCIATION [None]
  - INTENTIONAL SELF-INJURY [None]
  - NAUSEA [None]
  - SKIN LACERATION [None]
